FAERS Safety Report 8955089 (Version 1)
Quarter: 2012Q4

REPORT INFORMATION
  Report Type: 
  Country: US (occurrence: US)
  Receive Date: 20121207
  Receipt Date: 20121207
  Transmission Date: 20130627
  Serious: No
  Sender: FDA-Public Use
  Company Number: US-TEVA-374357USA

PATIENT
  Sex: Female

DRUGS (2)
  1. NUVIGIL [Suspect]
  2. UNSPECIFIED INGREDIENT [Suspect]
     Indication: CONTRACEPTION

REACTIONS (1)
  - Drug interaction [Unknown]
